FAERS Safety Report 24184563 (Version 1)
Quarter: 2024Q3

REPORT INFORMATION
  Report Type: Spontaneous
  Country: US (occurrence: None)
  Receive Date: 20240807
  Receipt Date: 20240807
  Transmission Date: 20241016
  Serious: No
  Sender: Public
  Company Number: None

PATIENT
  Age: 43 Year
  Sex: Male

DRUGS (6)
  1. XDEMVY [Suspect]
     Active Substance: LOTILANER
     Indication: Blepharitis
     Dosage: 1 DROPS(S) - GTT BID OPHTHALMIC?
     Route: 047
     Dates: start: 20240723, end: 20240726
  2. Atrovastatin [Concomitant]
  3. DELSTRIGO [Concomitant]
  4. TRINTELLIX [Concomitant]
     Active Substance: VORTIOXETINE HYDROBROMIDE
  5. Metoptolol ER [Concomitant]
  6. SKYRIZI [Concomitant]
     Active Substance: RISANKIZUMAB-RZAA

REACTIONS (1)
  - Eczema eyelids [None]

NARRATIVE: CASE EVENT DATE: 20240726
